FAERS Safety Report 17241593 (Version 1)
Quarter: 2020Q1

REPORT INFORMATION
  Report Type: Spontaneous
  Country: GB (occurrence: GB)
  Receive Date: 20200107
  Receipt Date: 20200107
  Transmission Date: 20200409
  Serious: Yes (Other)
  Sender: FDA-Public Use
  Company Number: GB-TEVA-2019-GB-1162949

PATIENT
  Age: 44 Year
  Sex: Female
  Weight: 65.77 kg

DRUGS (3)
  1. GEDAREL [Concomitant]
  2. DOXYCYCLINE. [Suspect]
     Active Substance: DOXYCYCLINE
     Indication: LOWER RESPIRATORY TRACT INFECTION
     Dosage: 2 ON FIRST DAY, THEN ONE DAILY.
     Route: 048
     Dates: start: 20191128, end: 20191128
  3. ZOMORPH [Concomitant]
     Active Substance: MORPHINE SULFATE

REACTIONS (5)
  - Vomiting [Recovered/Resolved]
  - Pyrexia [Unknown]
  - Swollen tongue [Recovered/Resolved]
  - Hypersensitivity [Recovered/Resolved]
  - Lacrimation increased [Recovered/Resolved]

NARRATIVE: CASE EVENT DATE: 20191128
